FAERS Safety Report 24652863 (Version 2)
Quarter: 2024Q4

REPORT INFORMATION
  Report Type: Spontaneous
  Country: US (occurrence: US)
  Receive Date: 20241122
  Receipt Date: 20241125
  Transmission Date: 20250115
  Serious: No
  Sender: NOVARTIS
  Company Number: US-002147023-NVSC2024US092595

PATIENT
  Sex: Male

DRUGS (1)
  1. FABHALTA [Suspect]
     Active Substance: IPTACOPAN HYDROCHLORIDE
     Indication: Paroxysmal nocturnal haemoglobinuria
     Dosage: 200 MG, BID
     Route: 048
     Dates: start: 20240413

REACTIONS (6)
  - Malaise [Unknown]
  - Seasonal allergy [Unknown]
  - Nasal congestion [Unknown]
  - Fatigue [Unknown]
  - Sinusitis [Unknown]
  - Haemoglobin increased [Unknown]
